FAERS Safety Report 7578495-4 (Version None)
Quarter: 2011Q2

REPORT INFORMATION
  Report Type: 
  Country: None (occurrence: None)
  Receive Date: 20110622
  Receipt Date: 20110615
  Transmission Date: 20111010
  Serious: Yes (Death)
  Sender: FDA-Public Use
  Company Number: DSA_46942_2011

PATIENT
  Age: 70 Year
  Sex: Female

DRUGS (1)
  1. XENAZINE [Suspect]
     Indication: DYSKINESIA
     Dosage: (6.25/12/5 MG BID ORAL)
     Route: 048
     Dates: start: 20100901

REACTIONS (1)
  - DEATH [None]
